FAERS Safety Report 13549032 (Version 1)
Quarter: 2017Q2

REPORT INFORMATION
  Report Type: Spontaneous
  Country: GB (occurrence: GB)
  Receive Date: 20170516
  Receipt Date: 20170516
  Transmission Date: 20170830
  Serious: Yes (Hospitalization)
  Sender: FDA-Public Use
  Company Number: GB-ACCORD-051236

PATIENT
  Age: 79 Year
  Sex: Male

DRUGS (6)
  1. SYMBICORT [Concomitant]
     Active Substance: BUDESONIDE\FORMOTEROL FUMARATE DIHYDRATE
  2. SPIRONOLACTONE. [Suspect]
     Active Substance: SPIRONOLACTONE
     Indication: PRODUCT USED FOR UNKNOWN INDICATION
     Route: 048
  3. APIXABAN [Concomitant]
     Active Substance: APIXABAN
  4. FINASTERIDE. [Concomitant]
     Active Substance: FINASTERIDE
  5. LISINOPRIL. [Suspect]
     Active Substance: LISINOPRIL
     Indication: PRODUCT USED FOR UNKNOWN INDICATION
     Route: 048
  6. THIAMINE. [Concomitant]
     Active Substance: THIAMINE

REACTIONS (3)
  - Hypokalaemia [Recovering/Resolving]
  - Urinary retention [Recovering/Resolving]
  - Confusional state [Unknown]
